FAERS Safety Report 19099730 (Version 2)
Quarter: 2025Q2

REPORT INFORMATION
  Report Type: Report from Study
  Country: FR (occurrence: FR)
  Receive Date: 20210407
  Receipt Date: 20250626
  Transmission Date: 20250716
  Serious: Yes (Other)
  Sender: AUROBINDO
  Company Number: FR-KYOWAKIRIN-2021BKK004602

PATIENT
  Age: 55 Year

DRUGS (2)
  1. CAPECITABINE [Suspect]
     Active Substance: CAPECITABINE
     Indication: Rectal adenocarcinoma
     Route: 048
  2. MITOMYCIN [Suspect]
     Active Substance: MITOMYCIN
     Indication: Rectal adenocarcinoma
     Route: 033
     Dates: start: 202003, end: 202003

REACTIONS (3)
  - Fungal sepsis [Unknown]
  - Urosepsis [Unknown]
  - Wrong technique in product usage process [Recovered/Resolved]

NARRATIVE: CASE EVENT DATE: 20200301
